FAERS Safety Report 12973813 (Version 1)
Quarter: 2016Q4

REPORT INFORMATION
  Report Type: Spontaneous
  Country: US (occurrence: US)
  Receive Date: 20161124
  Receipt Date: 20161124
  Transmission Date: 20170207
  Serious: Yes (Other)
  Sender: FDA-Public Use
  Company Number: US-BRISTOL-MYERS SQUIBB COMPANY-BMS-2016-098120

PATIENT
  Age: 33 Year
  Sex: Male

DRUGS (1)
  1. YERVOY [Suspect]
     Active Substance: IPILIMUMAB
     Indication: MALIGNANT MELANOMA
     Dosage: 1000 MG, UNK
     Route: 042
     Dates: start: 20161027

REACTIONS (3)
  - Pain in extremity [Unknown]
  - Chest discomfort [Unknown]
  - Renal pain [Unknown]

NARRATIVE: CASE EVENT DATE: 20161027
